FAERS Safety Report 20459626 (Version 2)
Quarter: 2022Q1

REPORT INFORMATION
  Report Type: Report from Study
  Country: IL (occurrence: IL)
  Receive Date: 20220211
  Receipt Date: 20220302
  Transmission Date: 20220423
  Serious: Yes (Death, Hospitalization)
  Sender: FDA-Public Use
  Company Number: IL-JNJFOC-20220204704

PATIENT
  Age: 82 Year
  Sex: Male

DRUGS (2)
  1. SIMPONI [Suspect]
     Active Substance: GOLIMUMAB
     Indication: Psoriatic arthropathy
     Route: 058
     Dates: start: 20200608, end: 20220204
  2. ENOXAPARIN SODIUM [Suspect]
     Active Substance: ENOXAPARIN SODIUM
     Indication: Blood disorder
     Route: 065

REACTIONS (7)
  - Pulmonary embolism [Fatal]
  - COVID-19 [Fatal]
  - Intestinal haemorrhage [Not Recovered/Not Resolved]
  - Blood disorder [Unknown]
  - Overdose [Unknown]
  - Pneumonia [Unknown]
  - Bacterial infection [Unknown]
